FAERS Safety Report 7842757-3 (Version None)
Quarter: 2011Q4

REPORT INFORMATION
  Report Type: 
  Country: None (occurrence: None)
  Receive Date: 20111025
  Receipt Date: 20110927
  Transmission Date: 20120403
  Serious: Yes (Death)
  Sender: FDA-Public Use
  Company Number: US-ROCHE-1002753

PATIENT

DRUGS (5)
  1. NITROGLYCERIN [Concomitant]
     Indication: ACUTE MYOCARDIAL INFARCTION
  2. ASPIRIN [Concomitant]
     Indication: ACUTE MYOCARDIAL INFARCTION
  3. OXYGEN [Concomitant]
  4. MORPHINE [Concomitant]
     Indication: PAIN
  5. TENECTEPLASE [Suspect]
     Indication: ACUTE MYOCARDIAL INFARCTION

REACTIONS (1)
  - DEATH [None]
